FAERS Safety Report 8531871-5 (Version None)
Quarter: 2012Q3

REPORT INFORMATION
  Report Type: 
  Country: None (occurrence: None)
  Receive Date: 20120723
  Receipt Date: 20120716
  Transmission Date: 20120928
  Serious: Yes (Other)
  Sender: FDA-Public Use
  Company Number: US-009507513-1111USA02498

PATIENT

DRUGS (6)
  1. MK-9359 [Concomitant]
     Indication: HYPERTENSION
     Dates: start: 19980101
  2. FOSAMAX [Suspect]
     Indication: OSTEOPOROSIS
     Route: 048
     Dates: start: 20050601, end: 20080601
  3. BONIVA [Suspect]
     Indication: OSTEOPOROSIS
     Dates: start: 20080601, end: 20090601
  4. SIMVASTATIN [Concomitant]
     Indication: BLOOD CHOLESTEROL INCREASED
     Dates: start: 19980101
  5. DIURETIC (UNSPECIFIED) [Concomitant]
     Dates: start: 19980101
  6. PRINIVIL [Concomitant]
     Indication: HYPERTENSION
     Dates: start: 19980101

REACTIONS (15)
  - DENTAL CARIES [None]
  - EDENTULOUS [None]
  - ORAL INFECTION [None]
  - ORAL PAIN [None]
  - GINGIVAL PAIN [None]
  - GINGIVAL BLEEDING [None]
  - TEMPOROMANDIBULAR JOINT SYNDROME [None]
  - PAIN IN JAW [None]
  - OEDEMA MOUTH [None]
  - SWELLING [None]
  - OSTEONECROSIS OF JAW [None]
  - ABSCESS [None]
  - EXOSTOSIS [None]
  - STOMATITIS [None]
  - TOOTH FRACTURE [None]
